FAERS Safety Report 9238218 (Version 1)
Quarter: 2013Q2

REPORT INFORMATION
  Report Type: Spontaneous
  Country: US (occurrence: None)
  Receive Date: 20130415
  Receipt Date: 20130415
  Transmission Date: 20140414
  Serious: Yes (Hospitalization)
  Sender: FDA-Public Use
  Company Number: B0882511A

PATIENT
  Age: 66 Year
  Sex: Male

DRUGS (7)
  1. VALACICLOVIR [Suspect]
     Indication: OPHTHALMIC HERPES ZOSTER
     Route: 048
  2. TRIFLURIDINE [Concomitant]
  3. SIMVASTATIN [Concomitant]
  4. METOPROLOL [Concomitant]
  5. SEVELAMER HYDROCHLORIDE [Concomitant]
  6. FRUSEMIDE [Concomitant]
  7. GLIMEPIRIDE [Concomitant]

REACTIONS (8)
  - Hallucination [None]
  - Insomnia [None]
  - Photosensitivity reaction [None]
  - Insomnia [None]
  - Encephalitis [None]
  - Depression [None]
  - Renal failure [None]
  - Dialysis [None]
